FAERS Safety Report 6968056-X (Version None)
Quarter: 2010Q3

REPORT INFORMATION
  Report Type: 
  Country: None (occurrence: None)
  Receive Date: 20100907
  Receipt Date: 20100825
  Transmission Date: 20110219
  Serious: Yes (Hospitalization)
  Sender: FDA-Public Use
  Company Number: A0879402A

PATIENT
  Age: 41 Year
  Sex: Male

DRUGS (1)
  1. AVANDIA [Suspect]
     Dosage: 4MG TWICE PER DAY
     Route: 048
     Dates: start: 20020601, end: 20040401

REACTIONS (5)
  - CARDIAC FAILURE [None]
  - MYOCARDIAL INFARCTION [None]
  - RENAL FAILURE [None]
  - URINARY TRACT INFECTION [None]
  - VENOUS INSUFFICIENCY [None]
